FAERS Safety Report 5942680-5 (Version None)
Quarter: 2008Q4

REPORT INFORMATION
  Report Type: 
  Country: None (occurrence: None)
  Receive Date: 20081106
  Receipt Date: 20081030
  Transmission Date: 20090506
  Serious: Yes (Hospitalization)
  Sender: FDA-Public Use
  Company Number: FR-RANBAXY-2008RR-19027

PATIENT
  Age: 29 Year
  Sex: Female

DRUGS (2)
  1. IBUPROFEN TABLETS [Suspect]
     Dosage: UNK
     Route: 048
     Dates: start: 20080415, end: 20080418
  2. ROXITHROMYCINE SANDOZ 150 MG, COMPRIME PELICULE [Concomitant]

REACTIONS (4)
  - CONJUNCTIVITIS [None]
  - RASH MACULO-PAPULAR [None]
  - STEVENS-JOHNSON SYNDROME [None]
  - TRAUMATIC ULCER [None]
